FAERS Safety Report 18641787 (Version 1)
Quarter: 2020Q4

REPORT INFORMATION
  Report Type: Spontaneous
  Country: NZ (occurrence: NZ)
  Receive Date: 20201221
  Receipt Date: 20201221
  Transmission Date: 20210114
  Serious: Yes (Other)
  Sender: FDA-Public Use
  Company Number: NZ-AMERICAN REGENT INC-2020002668

PATIENT
  Sex: Female
  Weight: 72 kg

DRUGS (4)
  1. FERINJECT [Suspect]
     Active Substance: FERRIC CARBOXYMALTOSE
     Dosage: 750 MG (REDUCED DOSE)
  2. FERINJECT [Suspect]
     Active Substance: FERRIC CARBOXYMALTOSE
     Dosage: 1 G (2X500 MG/10 ML)
     Dates: start: 20191216, end: 20191216
  3. FERINJECT [Suspect]
     Active Substance: FERRIC CARBOXYMALTOSE
     Indication: IRON DEFICIENCY ANAEMIA
     Dosage: UNK, DOSES 1-4
     Route: 042
  4. FERINJECT [Suspect]
     Active Substance: FERRIC CARBOXYMALTOSE
     Dosage: 750 MG

REACTIONS (9)
  - Malaise [Recovered/Resolved]
  - Fatigue [Recovered/Resolved]
  - Nausea [Recovered/Resolved]
  - Feeling cold [Recovered/Resolved]
  - Pyrexia [Unknown]
  - Haemolysis [Unknown]
  - Flank pain [Recovered/Resolved]
  - Myalgia [Recovered/Resolved]
  - Feeling hot [Recovered/Resolved]
